FAERS Safety Report 7284909-X (Version None)
Quarter: 2011Q1

REPORT INFORMATION
  Report Type: 
  Country: None (occurrence: None)
  Receive Date: 20110210
  Receipt Date: 20101229
  Transmission Date: 20110831
  Serious: Yes (Hospitalization, Other)
  Sender: FDA-Public Use
  Company Number: US-BAYER-200943683NA

PATIENT
  Sex: Female
  Weight: 90 kg

DRUGS (5)
  1. VASOTEC [Concomitant]
     Indication: HYPERTENSION
  2. YASMIN [Suspect]
     Indication: PRODUCT USED FOR UNKNOWN INDICATION
  3. UNCODEABLE ^UNCLASSIFIABLE^ [Concomitant]
  4. YAZ [Suspect]
     Dosage: UNK
  5. UNCODEABLE ^UNCLASSIFIABLE^ [Concomitant]
     Indication: HYPERTENSION

REACTIONS (12)
  - PANCREATITIS [None]
  - HYPOGLYCAEMIA [None]
  - CHOLELITHIASIS [None]
  - CHOLECYSTITIS CHRONIC [None]
  - VOMITING [None]
  - ABDOMINAL PAIN [None]
  - PAIN [None]
  - DIARRHOEA [None]
  - HYPERHIDROSIS [None]
  - TACHYCARDIA [None]
  - NAUSEA [None]
  - ANXIETY [None]
